FAERS Safety Report 15832703 (Version 1)
Quarter: 2019Q1

REPORT INFORMATION
  Report Type: Spontaneous
  Country: US (occurrence: US)
  Receive Date: 20190116
  Receipt Date: 20190116
  Transmission Date: 20190417
  Serious: Yes (Other)
  Sender: FDA-Public Use
  Company Number: US-AUROBINDO-AUR-APL-2019-000253

PATIENT
  Age: 13 Year
  Sex: Male

DRUGS (3)
  1. RISPERIDONE. [Suspect]
     Active Substance: RISPERIDONE
     Indication: AUTISM SPECTRUM DISORDER
     Dosage: 1.75 MILLILITER, TWO TIMES A DAY
     Route: 065
  2. RISPERIDONE. [Suspect]
     Active Substance: RISPERIDONE
     Indication: ATTENTION DEFICIT/HYPERACTIVITY DISORDER
     Dosage: 0.25 MILLILITER, TWO TIMES A DAY
     Route: 065
  3. RISPERIDONE. [Suspect]
     Active Substance: RISPERIDONE
     Indication: OBSESSIVE-COMPULSIVE DISORDER

REACTIONS (5)
  - Abnormal behaviour [Recovering/Resolving]
  - Tardive dyskinesia [Recovering/Resolving]
  - Aggression [Recovering/Resolving]
  - Insomnia [Recovering/Resolving]
  - Scoliosis [Unknown]

NARRATIVE: CASE EVENT DATE: 2017
